FAERS Safety Report 8310748-4 (Version None)
Quarter: 2012Q2

REPORT INFORMATION
  Report Type: 
  Country: None (occurrence: None)
  Receive Date: 20120425
  Receipt Date: 20120416
  Transmission Date: 20120825
  Serious: Yes (Other)
  Sender: FDA-Public Use
  Company Number: BR-JNJFOC-20120408581

PATIENT
  Sex: Female
  Weight: 49 kg

DRUGS (1)
  1. LISTERINE WHITENING ANTIMANCHAS ANTI-SEPTICO BUCAL [Suspect]
     Indication: PRODUCT USED FOR UNKNOWN INDICATION
     Route: 002
     Dates: start: 20120409, end: 20120409

REACTIONS (1)
  - WOUND [None]
